FAERS Safety Report 8863033 (Version 2)
Quarter: 2012Q4

REPORT INFORMATION
  Report Type: Report from Study
  Country: IN (occurrence: US)
  Receive Date: 20121026
  Receipt Date: 20121107
  Transmission Date: 20130627
  Serious: Yes (Hospitalization)
  Sender: FDA-Public Use
  Company Number: US-BRISTOL-MYERS SQUIBB COMPANY-17048307

PATIENT
  Age: 59 Year
  Sex: Male

DRUGS (1)
  1. IPILIMUMAB [Suspect]
     Indication: MALIGNANT MELANOMA
     Dosage: no of courses:7
     Route: 042
     Dates: start: 20070905, end: 20080929

REACTIONS (2)
  - Colitis [Recovered/Resolved]
  - Dehydration [Recovered/Resolved]
